FAERS Safety Report 8509075-1 (Version None)
Quarter: 2012Q3

REPORT INFORMATION
  Report Type: 
  Country: None (occurrence: None)
  Receive Date: 20120713
  Receipt Date: 20120711
  Transmission Date: 20120928
  Serious: Yes (Death, Life-Threatening, Hospitalization, Other)
  Sender: FDA-Public Use
  Company Number: AU-B.I. PHARMACEUTICALS,INC./RIDGEFIELD-2012-AU-01176AU

PATIENT
  Sex: Male

DRUGS (10)
  1. PRADAXA [Suspect]
     Dosage: 300 MG
     Dates: start: 20120617
  2. PERINDOPRIL ARGININE [Concomitant]
     Dosage: 2.5 MG
     Dates: start: 20120601
  3. ATORVASTATIN [Concomitant]
     Dosage: 80 MG
     Dates: start: 20120612
  4. REOPRO [Concomitant]
     Route: 042
  5. PRADAXA [Suspect]
     Indication: ATRIAL FIBRILLATION
     Dosage: 300 MG
     Dates: start: 20110701, end: 20120612
  6. METOPROLOL TARTRATE [Concomitant]
     Indication: ATRIAL FIBRILLATION
     Dosage: 100 MG
  7. METOPROLOL TARTRATE [Concomitant]
     Dosage: 50 MG
     Dates: start: 20120601
  8. ASPIRIN [Concomitant]
     Dosage: 100 MG
     Dates: start: 20120612
  9. ENOXAPARIN SODIUM [Concomitant]
     Dates: start: 20120612, end: 20120616
  10. PLAVIX [Concomitant]
     Dosage: 75 MG
     Dates: start: 20120612

REACTIONS (7)
  - ACUTE MYOCARDIAL INFARCTION [None]
  - VENTRICULAR FIBRILLATION [None]
  - SYNCOPE [None]
  - CORONARY ARTERY THROMBOSIS [None]
  - HYPOXIC-ISCHAEMIC ENCEPHALOPATHY [None]
  - CORONARY ARTERY OCCLUSION [None]
  - CHEST PAIN [None]
